FAERS Safety Report 24218060 (Version 4)
Quarter: 2024Q3

REPORT INFORMATION
  Report Type: Spontaneous
  Country: AU (occurrence: AU)
  Receive Date: 20240816
  Receipt Date: 20240924
  Transmission Date: 20241016
  Serious: Yes (Hospitalization)
  Sender: GUERBET
  Company Number: AU-GUERBET / ASPEN AUSTRALIA-AU-20240048

PATIENT
  Age: 63 Year
  Sex: Male
  Weight: 80 kg

DRUGS (2)
  1. DOTAREM [Suspect]
     Active Substance: GADOTERATE MEGLUMINE
     Indication: Magnetic resonance imaging prostate
     Route: 042
     Dates: start: 20240808, end: 20240808
  2. BUTYLSCOPOLAMINE BROMIDE [Concomitant]
     Active Substance: BUTYLSCOPOLAMINE BROMIDE
     Indication: Premedication
     Route: 042
     Dates: start: 20240808, end: 20240808

REACTIONS (2)
  - Throat tightness [Recovered/Resolved]
  - Urticaria [Recovered/Resolved]

NARRATIVE: CASE EVENT DATE: 20240808
